FAERS Safety Report 8269317 (Version 6)
Quarter: 2017Q1

REPORT INFORMATION
  Report Type: Report from Study
  Country: JP (occurrence: JP)
  Receive Date: 20111130
  Receipt Date: 20170224
  Transmission Date: 20170429
  Serious: Yes (Death, Life-Threatening, Hospitalization)
  Sender: FDA-Public Use
  Company Number: JP-PFIZER INC-2011288909

PATIENT
  Age: 78 Year
  Sex: Male
  Weight: 65 kg

DRUGS (8)
  1. OXINORM (OXYCODONE HYDROCHLORIDE) [Concomitant]
     Active Substance: OXYCODONE HYDROCHLORIDE
     Indication: RENAL CELL CARCINOMA
     Dosage: 5 MG, AS NEEDED
     Dates: start: 20110803, end: 20110914
  2. OPSO [Concomitant]
     Active Substance: MORPHINE HYDROCHLORIDE
     Indication: RENAL CELL CARCINOMA
     Dosage: 5 MG, AS NEEDED
     Dates: start: 20110815, end: 20110914
  3. OXYCONTIN [Concomitant]
     Active Substance: OXYCODONE HYDROCHLORIDE
     Dosage: 15 MG, 2X/DAY
     Route: 048
     Dates: start: 20110517, end: 20110525
  4. HYPEN [Concomitant]
     Active Substance: ETODOLAC
     Indication: RENAL CELL CARCINOMA
     Dosage: 200 MG, 2X/DAY
     Route: 048
  5. TEMSIROLIMUS [Suspect]
     Active Substance: TEMSIROLIMUS
     Indication: RENAL CELL CARCINOMA
     Dosage: 25 MG, UNK
     Route: 042
     Dates: start: 20110517, end: 20110810
  6. NOVAMIN [Concomitant]
     Active Substance: PROCHLORPERAZINE MALEATE
     Dosage: 5 MG, 3X/DAY
     Route: 048
     Dates: end: 20110615
  7. POLARAMINE [Concomitant]
     Active Substance: DEXCHLORPHENIRAMINE MALEATE
     Indication: PROPHYLAXIS
     Dosage: 5 MG, 1X/DAY
     Route: 042
     Dates: start: 20110517
  8. OXYCONTIN [Concomitant]
     Active Substance: OXYCODONE HYDROCHLORIDE
     Indication: RENAL CELL CARCINOMA
     Dosage: 10 MG, 2X/DAY
     Route: 048
     Dates: end: 20110516

REACTIONS (4)
  - Acute myocardial infarction [Recovered/Resolved]
  - Disease progression [Fatal]
  - Pneumonia bacterial [Recovering/Resolving]
  - Renal cell carcinoma [Fatal]

NARRATIVE: CASE EVENT DATE: 20110526
